FAERS Safety Report 9070210 (Version 1)
Quarter: 2013Q1

REPORT INFORMATION
  Report Type: Report from Study
  Country: US (occurrence: US)
  Receive Date: 20130129
  Receipt Date: 20130129
  Transmission Date: 20140127
  Serious: No
  Sender: FDA-Public Use
  Company Number: US-ABBOTT-12P-163-0926575-00

PATIENT
  Age: 60 Year
  Sex: Female

DRUGS (7)
  1. HUMIRA 40 MG/0.8 ML PEN [Suspect]
     Indication: COLITIS ULCERATIVE
     Dates: start: 2009
  2. VYTORIN [Concomitant]
     Indication: BLOOD CHOLESTEROL INCREASED
  3. DICYCLOMINE [Concomitant]
     Indication: COLITIS ULCERATIVE
     Dosage: 10 MG, 3-4 TIMES A DAY, AS NEEDED
  4. AMLODIPINE [Concomitant]
     Indication: HYPERTENSION
  5. COLAZAL [Concomitant]
     Indication: PRODUCT USED FOR UNKNOWN INDICATION
     Dosage: 750 MG, 9 TABS DAILY
  6. EFFEXOR [Concomitant]
     Indication: DEPRESSION
     Dosage: 150 MG DAILY
  7. EFFEXOR [Concomitant]
     Indication: ANXIETY

REACTIONS (3)
  - Weight increased [Not Recovered/Not Resolved]
  - Constipation [Not Recovered/Not Resolved]
  - Injection site pain [Not Recovered/Not Resolved]
